FAERS Safety Report 9345750 (Version 2)
Quarter: 2013Q3

REPORT INFORMATION
  Report Type: Spontaneous
  Country: US (occurrence: US)
  Receive Date: 20130613
  Receipt Date: 20130826
  Transmission Date: 20140515
  Serious: Yes (Other)
  Sender: FDA-Public Use
  Company Number: US-PFIZER INC-2013175595

PATIENT
  Age: 31 Year
  Sex: Female

DRUGS (4)
  1. CAMPTOSAR [Suspect]
     Indication: COLORECTAL CANCER METASTATIC
     Dosage: 304 MG, CYCLIC (4 CYCLES)
     Dates: start: 20130110
  2. CAMPTOSAR [Suspect]
     Dosage: 304 MG, 4 CYCLES (Q 2 WEEKS)
     Route: 042
     Dates: start: 20130114, end: 20130305
  3. FLUOROURACIL [Suspect]
     Indication: RECTAL CANCER
     Dosage: 338 MG, CYCLIC (4 CYCLES)
     Route: 042
     Dates: start: 201301, end: 201303
  4. LEUCOVORIN [Suspect]
     Indication: RECTAL CANCER
     Dosage: 338 MG, 4 CYCLES
     Route: 042
     Dates: start: 201301, end: 201303

REACTIONS (4)
  - Anal stenosis [Unknown]
  - Diarrhoea [Recovering/Resolving]
  - Dehydration [Unknown]
  - Anal fissure [Unknown]
